FAERS Safety Report 10369058 (Version 1)
Quarter: 2014Q1

REPORT INFORMATION
  Report Type: Spontaneous
  Country: US (occurrence: None)
  Receive Date: 20140306
  Receipt Date: 20140306
  Transmission Date: 20141002
  Serious: Yes (Hospitalization)
  Sender: FDA-Public Use
  Company Number: 163-21880-13023109

PATIENT
  Age: 65 Year
  Sex: Female
  Weight: 74.84 kg

DRUGS (10)
  1. REVLIMID (LENALIDOMIDE) (15 MILLIGRAM, CAPSULES) [Suspect]
     Indication: PLASMA CELL MYELOMA
     Route: 048
     Dates: start: 20120710
  2. ACYCLOBIR (ACICLOVIR) [Concomitant]
  3. DILTIAZEM (DILTIAZEM) [Concomitant]
  4. FOLIC ACID (FOLIC ACID) [Concomitant]
  5. MAGNESIUM (MAGNESIUM) [Concomitant]
  6. MULTIVITA,INS (MULTIVITAMINS) [Concomitant]
  7. PRILOSEC (OMEPRAZOLE) [Concomitant]
  8. TUMS ULTRA (CALCIUM CARBONATE) [Concomitant]
  9. VITAMIN D (ERGOCALCIFEROL) [Concomitant]
  10. WARFARIN SODIUM (WARFARIN SODIUM) [Concomitant]

REACTIONS (2)
  - Deep vein thrombosis [None]
  - Oedema [None]
